FAERS Safety Report 15037373 (Version 1)
Quarter: 2018Q2

REPORT INFORMATION
  Report Type: Spontaneous
  Country: FR (occurrence: FR)
  Receive Date: 20180620
  Receipt Date: 20180620
  Transmission Date: 20180711
  Serious: Yes (Hospitalization, Other)
  Sender: FDA-Public Use
  Company Number: FR-TEVA-2018-FR-911577

PATIENT
  Age: 57 Year
  Sex: Female
  Weight: 80.6 kg

DRUGS (12)
  1. NEBIVOLOL. [Concomitant]
     Active Substance: NEBIVOLOL
     Route: 065
  2. DOLIPRANE [Concomitant]
     Active Substance: ACETAMINOPHEN
     Route: 065
  3. RENVELA 800 MG, COMPRIME PELLICULE [Concomitant]
     Route: 065
  4. INVANZ [Concomitant]
     Active Substance: ERTAPENEM SODIUM
     Route: 065
  5. FUROSEMIDE TEVA 500 MG, COMPRIM? S?CABLE [Suspect]
     Active Substance: FUROSEMIDE
     Indication: ACUTE KIDNEY INJURY
     Dosage: 250 MILLIGRAM DAILY;
     Route: 048
     Dates: start: 20180430, end: 20180504
  6. TERALITHE [Interacting]
     Active Substance: LITHIUM CARBONATE
     Indication: BIPOLAR I DISORDER
     Dosage: 62.5 MILLIGRAM DAILY;
     Route: 048
  7. MIRCERA [Concomitant]
     Active Substance: METHOXY POLYETHYLENE GLYCOL-EPOETIN BETA
     Route: 065
  8. FUROSEMIDE ARROW 40 MG, COMPRIM? S?CABLE [Interacting]
     Active Substance: FUROSEMIDE
     Indication: END STAGE RENAL DISEASE
     Dosage: 80 MILLIGRAM DAILY;
     Route: 048
  9. CALTRATE 600 MG, COMPRIM? PELLICUL? [Concomitant]
     Route: 065
  10. DIFFU K [Concomitant]
     Active Substance: POTASSIUM CHLORIDE
     Route: 065
  11. LASILIX SPECIAL 250 MG/25 ML, SOLUTION INJECTABLE EN AMPOULE [Interacting]
     Active Substance: FUROSEMIDE
     Indication: ACUTE KIDNEY INJURY
     Dosage: 500 MILLIGRAM DAILY;
     Route: 041
     Dates: start: 20180429, end: 20180430
  12. LEVOTHYROX 175 MICROGRAMMES, COMPRIM? S?CABLE [Concomitant]
     Active Substance: LEVOTHYROXINE SODIUM
     Route: 065

REACTIONS (7)
  - Drug interaction [Unknown]
  - Decreased appetite [Not Recovered/Not Resolved]
  - Vomiting [Not Recovered/Not Resolved]
  - Antipsychotic drug level increased [Not Recovered/Not Resolved]
  - Confusional state [Not Recovered/Not Resolved]
  - Asthenia [Not Recovered/Not Resolved]
  - Renal failure [Not Recovered/Not Resolved]

NARRATIVE: CASE EVENT DATE: 20180418
